FAERS Safety Report 11892011 (Version 1)
Quarter: 2016Q1

REPORT INFORMATION
  Report Type: Spontaneous
  Country: US (occurrence: US)
  Receive Date: 20160106
  Receipt Date: 20160106
  Transmission Date: 20160526
  Serious: Yes (Death, Hospitalization)
  Sender: FDA-Public Use
  Company Number: US-KERYX BIOPHARMACEUTICALS, INC.-2015US001382

PATIENT
  Age: 64 Year
  Sex: Male

DRUGS (1)
  1. AURYXIA [Suspect]
     Active Substance: TETRAFERRIC TRICITRATE DECAHYDRATE
     Indication: PRODUCT USED FOR UNKNOWN INDICATION
     Dosage: 6 + TABS, QD
     Route: 048
     Dates: start: 20150723

REACTIONS (2)
  - Cardiac arrest [Fatal]
  - Hospitalisation [Fatal]

NARRATIVE: CASE EVENT DATE: 20151216
